FAERS Safety Report 9050923 (Version 1)
Quarter: 2013Q1

REPORT INFORMATION
  Report Type: Spontaneous
  Country: US (occurrence: US)
  Receive Date: 20130205
  Receipt Date: 20130205
  Transmission Date: 20140127
  Serious: No
  Sender: FDA-Public Use
  Company Number: US-BIOGENIDEC-2013BI009190

PATIENT
  Sex: Male

DRUGS (1)
  1. AVONEX [Suspect]
     Indication: MULTIPLE SCLEROSIS
     Route: 030
     Dates: start: 19960501

REACTIONS (6)
  - Blindness unilateral [Unknown]
  - Nervousness [Unknown]
  - Memory impairment [Unknown]
  - Confusional state [Unknown]
  - Dizziness [Unknown]
  - Anxiety [Unknown]
